FAERS Safety Report 6137220-4 (Version None)
Quarter: 2009Q1

REPORT INFORMATION
  Report Type: 
  Country: None (occurrence: None)
  Receive Date: 20090330
  Receipt Date: 20090320
  Transmission Date: 20090719
  Serious: Yes (Other)
  Sender: FDA-Public Use
  Company Number: PHEH2009US02607

PATIENT
  Sex: Male

DRUGS (10)
  1. ZOMETA [Suspect]
     Indication: PROSTATE CANCER METASTATIC
     Dosage: 4 MG EVERY 4-6 WEEKS
     Route: 042
     Dates: start: 20080710, end: 20081001
  2. DECADRON [Concomitant]
     Dosage: 8 MG, UNK
     Route: 048
     Dates: start: 20080701, end: 20081024
  3. PREDNISONE [Concomitant]
     Dosage: 10 MG, UNK
     Route: 048
     Dates: start: 20080925, end: 20081024
  4. FLOMAX [Concomitant]
     Dosage: 0.4 MG, UNK
     Route: 048
  5. LISINOPRIL [Concomitant]
     Dosage: 2.5 MG, UNK
     Route: 048
  6. LEVOTHYROXINE [Concomitant]
     Dosage: 100 UG, UNK
     Route: 048
  7. MEGESTROL ACETATE [Concomitant]
     Dosage: 20 MG, UNK
     Route: 048
  8. FAMOTIDINE [Concomitant]
     Dosage: 10 MG, UNK
     Route: 048
  9. FENTANYL-25 [Concomitant]
     Dosage: 50 UG, UNK
     Route: 061
     Dates: start: 20081009
  10. OXYCODONE HCL [Concomitant]
     Dosage: 5 MG, UNK
     Route: 048

REACTIONS (4)
  - BONE DISORDER [None]
  - ORAL DISORDER [None]
  - OSTEONECROSIS [None]
  - PAIN [None]
